FAERS Safety Report 24687457 (Version 2)
Quarter: 2025Q1

REPORT INFORMATION
  Report Type: Spontaneous
  Country: BR (occurrence: BR)
  Receive Date: 20241202
  Receipt Date: 20250113
  Transmission Date: 20250409
  Serious: Yes (Hospitalization, Other)
  Sender: FERRING
  Company Number: BR-FERRINGPH-2024FE06551

PATIENT

DRUGS (4)
  1. MENOPUR [Suspect]
     Active Substance: FOLLITROPIN\LUTEINIZING HORMONE
     Indication: In vitro fertilisation
     Route: 065
  2. FOLLITROPIN DELTA [Suspect]
     Active Substance: FOLLITROPIN DELTA
     Indication: In vitro fertilisation
     Route: 065
  3. DUPHASTON [Suspect]
     Active Substance: DYDROGESTERONE
     Indication: Therapeutic ovarian suppression
     Route: 065
  4. LETROZOLE [Suspect]
     Active Substance: LETROZOLE
     Indication: Hormone therapy
     Route: 065

REACTIONS (4)
  - Hepatotoxicity [Unknown]
  - Abdominal pain upper [Unknown]
  - Hepatic enzyme increased [Unknown]
  - Blood creatine phosphokinase increased [Unknown]
